FAERS Safety Report 6788607-8 (Version None)
Quarter: 2010Q2

REPORT INFORMATION
  Report Type: 
  Country: None (occurrence: None)
  Receive Date: 20100623
  Receipt Date: 20080409
  Transmission Date: 20101027
  Serious: No
  Sender: FDA-Public Use
  Company Number: US-PFIZER INC-2008028180

PATIENT
  Sex: Male
  Weight: 90.909 kg

DRUGS (3)
  1. GENOTROPIN [Suspect]
     Indication: MUSCULAR DYSTROPHY
     Dosage: 1 EVERY 3 DAYS
     Dates: start: 20070101
  2. GENOTROPIN [Suspect]
  3. VICODIN [Concomitant]

REACTIONS (1)
  - INJECTION SITE EROSION [None]
